FAERS Safety Report 5339159-0 (Version None)
Quarter: 2007Q2

REPORT INFORMATION
  Report Type: 
  Country: None (occurrence: None)
  Receive Date: 20070530
  Receipt Date: 20070528
  Transmission Date: 20071010
  Serious: Yes (Life-Threatening)
  Sender: FDA-Public Use
  Company Number: IT-BOEHRINGER INGELHEIM PHARMACEUTICALS, INC.-2007-IT-00214IT

PATIENT
  Sex: Male
  Weight: 108 kg

DRUGS (7)
  1. MIRAPEXIN [Suspect]
     Indication: PARKINSON'S DISEASE
     Route: 048
     Dates: start: 20051121
  2. AMIODAR [Concomitant]
     Indication: ATRIAL FIBRILLATION
     Route: 048
     Dates: start: 20040101
  3. CARDIRENE [Concomitant]
     Indication: HYPERTENSION
     Route: 048
     Dates: start: 19990101
  4. VASERETIC [Concomitant]
     Indication: HYPERTENSION
     Route: 048
     Dates: start: 19990101
  5. CARDURA [Concomitant]
     Indication: HYPERTENSION
     Route: 048
     Dates: start: 19990101
  6. LANOXIN [Concomitant]
     Indication: ATRIAL FIBRILLATION
     Route: 048
     Dates: start: 20040101
  7. MADOPAR [Concomitant]
     Indication: PARKINSON'S DISEASE
     Route: 048
     Dates: start: 20050101

REACTIONS (2)
  - ROAD TRAFFIC ACCIDENT [None]
  - SUDDEN ONSET OF SLEEP [None]
